FAERS Safety Report 4414821-2 (Version None)
Quarter: 2004Q3

REPORT INFORMATION
  Report Type: 
  Country: None (occurrence: None)
  Receive Date: 20040804
  Receipt Date: 20031031
  Transmission Date: 20050211
  Serious: No
  Sender: FDA-Public Use
  Company Number: US-BRISTOL-MYERS SQUIBB COMPANY-12424008

PATIENT
  Age: 70 Year
  Sex: Male
  Weight: 85 kg

DRUGS (6)
  1. GLUCOVANCE [Suspect]
     Indication: DIABETES MELLITUS
     Dosage: DOSAGE FORM = TABLETS
     Route: 048
  2. MULTIVITAMIN [Concomitant]
  3. CAPTOPRIL [Concomitant]
  4. ARICEPT [Concomitant]
  5. OXYBUTYNIN [Concomitant]
  6. ALPRAZOLAM [Concomitant]
     Dosage: TWO TO THREE TIMES PER WEEK ^TO HELP HIM SLEEP^

REACTIONS (1)
  - BLOOD GLUCOSE INCREASED [None]
